FAERS Safety Report 5703765-1 (Version None)
Quarter: 2008Q2

REPORT INFORMATION
  Report Type: 
  Country: None (occurrence: None)
  Receive Date: 20080413
  Receipt Date: 20080407
  Transmission Date: 20081010
  Serious: Yes (Hospitalization, Other)
  Sender: FDA-Public Use
  Company Number: PHEH2006US12306

PATIENT
  Age: 76 Year
  Sex: Male
  Weight: 86.621 kg

DRUGS (15)
  1. ZOMETA [Suspect]
     Indication: METASTASES TO BONE
     Dates: end: 20050601
  2. ZOMETA [Suspect]
     Dates: end: 20050601
  3. TAXOL [Concomitant]
     Indication: PROSTATE CANCER
  4. PREDNISONE [Concomitant]
     Dosage: 10 MG, QD
     Route: 048
  5. DIGITEK [Concomitant]
     Dosage: 0.25 MG, QD
     Route: 048
  6. LEXAPRO [Concomitant]
     Dosage: 10 MG, QD
     Route: 048
  7. MENEST [Concomitant]
     Dosage: 25 MG, QD
     Route: 048
  8. DYAZIDE [Concomitant]
     Dosage: UNK, QD
     Route: 048
  9. CASODEX [Concomitant]
  10. CYTOXAN [Concomitant]
  11. ESTRATAB [Concomitant]
  12. PROCARDIA [Concomitant]
     Dosage: 60 MG, OD
  13. PROCARDIA [Concomitant]
     Dosage: 60 MG, OD
  14. PROCARDIA [Concomitant]
     Dosage: 60 MG, OD
  15. AREDIA [Suspect]
     Indication: METASTASES TO BONE
     Dosage: 90 MG, UNK
     Route: 042
     Dates: start: 19990101

REACTIONS (30)
  - ANAEMIA [None]
  - ANXIETY [None]
  - ASPIRATION PLEURAL CAVITY [None]
  - BACK PAIN [None]
  - BONE FISTULA [None]
  - BONE FRAGMENTATION [None]
  - BONE NEOPLASM [None]
  - CARDIAC FAILURE CONGESTIVE [None]
  - CATARACT [None]
  - CELLULITIS [None]
  - COMPRESSION FRACTURE [None]
  - DYSPNOEA [None]
  - GAIT DISTURBANCE [None]
  - GASTROOESOPHAGEAL REFLUX DISEASE [None]
  - HYPOTENSION [None]
  - INJURY [None]
  - LOOSE TOOTH [None]
  - NEOPLASM PROGRESSION [None]
  - NERVOUS SYSTEM DISORDER [None]
  - ORTHOSTATIC INTOLERANCE [None]
  - OSTEOMYELITIS [None]
  - OSTEONECROSIS [None]
  - PAIN [None]
  - PERICARDIAL EFFUSION [None]
  - PHLEBITIS [None]
  - PHYSICAL DISABILITY [None]
  - PLEURAL EFFUSION [None]
  - SKIN ULCER [None]
  - SPINAL CORD COMPRESSION [None]
  - WOUND [None]
